FAERS Safety Report 23986949 (Version 1)
Quarter: 2024Q2

REPORT INFORMATION
  Report Type: Spontaneous
  Country: US (occurrence: US)
  Receive Date: 20240618
  Receipt Date: 20240618
  Transmission Date: 20240716
  Serious: No
  Sender: FDA-Public Use
  Company Number: US-ACELLA PHARMACEUTICALS, LLC-2023ALO00055

PATIENT
  Age: 72 Year
  Sex: Female
  Weight: 61.224 kg

DRUGS (2)
  1. GABAPENTIN [Suspect]
     Active Substance: GABAPENTIN
     Indication: Pain in extremity
     Dosage: 900 MG, 1X/DAY AT NIGHT
     Route: 048
     Dates: start: 202308, end: 202309
  2. GABAPENTIN [Suspect]
     Active Substance: GABAPENTIN
     Dosage: 900 MG, 1X/DAY AT NIGHT
     Route: 048
     Dates: start: 20231012, end: 20231013

REACTIONS (8)
  - Throat irritation [Recovering/Resolving]
  - Lacrimation increased [Recovering/Resolving]
  - Cough [Recovering/Resolving]
  - Product taste abnormal [Recovered/Resolved]
  - Product odour abnormal [Recovered/Resolved]
  - Product use complaint [Not Recovered/Not Resolved]
  - Inappropriate schedule of product administration [Recovered/Resolved]
  - Product quality issue [Recovered/Resolved]

NARRATIVE: CASE EVENT DATE: 20230801
